FAERS Safety Report 9013859 (Version 2)
Quarter: 2013Q1

REPORT INFORMATION
  Report Type: Report from Study
  Country: US (occurrence: US)
  Receive Date: 20130115
  Receipt Date: 20130125
  Transmission Date: 20140127
  Serious: Yes (Hospitalization)
  Sender: FDA-Public Use
  Company Number: US-VERTEX PHARMACEUTICALS INC.-2013-000572

PATIENT
  Sex: Male

DRUGS (25)
  1. VX-770 [Suspect]
     Indication: CYSTIC FIBROSIS
     Dosage: 150 MG, BID
     Route: 048
     Dates: start: 20120426
  2. ADVAIR [Concomitant]
     Dosage: UNK
  3. PROVENTIL [Concomitant]
     Dosage: 2 DF, PRN
     Route: 055
  4. AQUADEKS [Concomitant]
     Dosage: 1 DF, BID
     Route: 048
     Dates: start: 20111223
  5. ZITHROMYCIN [Concomitant]
     Dosage: 500 MG, MWF
  6. SYMBICORT [Concomitant]
     Dosage: 2 DF, BID
     Route: 055
  7. CALCIUM + VITAMIN D [Concomitant]
     Dosage: 200 IU, TID
     Route: 048
  8. CIPROFLOXACIN [Concomitant]
     Dosage: 750 MG, BID
     Route: 048
  9. COLACE [Concomitant]
     Dosage: 100 MG, QD
     Route: 048
  10. PULMOZYME [Concomitant]
     Dosage: 2.5 MG, QD
     Route: 055
  11. DRISDOL [Concomitant]
     Dosage: 50000 IU, QW
     Route: 048
  12. FERROUS SULFATE [Concomitant]
     Dosage: 325 MG, TID
     Route: 048
  13. FLONASE [Concomitant]
     Dosage: 1 DF, BID
     Route: 045
  14. GLUCAGON [Concomitant]
     Dosage: UNK, PRN
  15. HUMALOG [Concomitant]
     Dosage: UNK
     Route: 058
  16. NOVOLOG [Concomitant]
     Dosage: UNK
     Route: 058
  17. CLARITIN [Concomitant]
     Dosage: 10 MG, QD
     Route: 048
  18. COZAAR [Concomitant]
     Dosage: 25 MG, QD
     Route: 048
  19. REMERON [Concomitant]
     Dosage: UNK
     Route: 048
  20. ZYPREXA [Concomitant]
     Dosage: 5 MG, QD
     Route: 048
  21. PRILOSEC [Concomitant]
     Dosage: 40 MG, QD
     Route: 048
  22. RISPERDAL [Concomitant]
     Dosage: UNK
     Route: 048
  23. ACTIGALL [Concomitant]
     Dosage: 300 MG, BID
     Route: 048
  24. VITAMIN A [Concomitant]
     Dosage: UNK, QD
     Route: 048
  25. ZENPEP [Concomitant]
     Dosage: UNK
     Route: 048

REACTIONS (3)
  - Infective pulmonary exacerbation of cystic fibrosis [Recovered/Resolved]
  - Pseudomonas infection [Not Recovered/Not Resolved]
  - Adenoviral upper respiratory infection [Recovered/Resolved]
